FAERS Safety Report 6197023-1 (Version None)
Quarter: 2009Q2

REPORT INFORMATION
  Report Type: 
  Country: None (occurrence: None)
  Receive Date: 20090520
  Receipt Date: 20090513
  Transmission Date: 20091009
  Serious: Yes (Other)
  Sender: FDA-Public Use
  Company Number: US-ASTRAZENECA-2009UW12431

PATIENT
  Age: 40 Year
  Sex: Female

DRUGS (4)
  1. SEROQUEL [Suspect]
     Indication: SLEEP DISORDER THERAPY
     Route: 048
  2. SEROQUEL [Suspect]
     Indication: MENTAL DISORDER
     Route: 048
  3. CRESTOR [Suspect]
     Route: 048
  4. GEMFIBROZIL [Concomitant]
     Dosage: CUTTING IT IN HALF

REACTIONS (2)
  - MYALGIA [None]
  - TARDIVE DYSKINESIA [None]
